FAERS Safety Report 18878919 (Version 1)
Quarter: 2021Q1

REPORT INFORMATION
  Report Type: Spontaneous
  Country: US (occurrence: US)
  Receive Date: 20210211
  Receipt Date: 20210211
  Transmission Date: 20210420
  Serious: No
  Sender: FDA-Public Use
  Company Number: US-SA-2021SA041107

PATIENT
  Age: 63 Year
  Sex: Female

DRUGS (1)
  1. LANTUS [Suspect]
     Active Substance: INSULIN GLARGINE
     Dosage: 100 IU, QD
     Route: 065
     Dates: start: 20210131

REACTIONS (5)
  - Flatulence [Unknown]
  - Oral mucosal blistering [Unknown]
  - Diarrhoea [Unknown]
  - Ageusia [Unknown]
  - Glossitis [Unknown]

NARRATIVE: CASE EVENT DATE: 20210131
